FAERS Safety Report 23144506 (Version 1)
Quarter: 2023Q4

REPORT INFORMATION
  Report Type: Spontaneous
  Country: GB (occurrence: GB)
  Receive Date: 20231103
  Receipt Date: 20231103
  Transmission Date: 20240110
  Serious: Yes (Other)
  Sender: FDA-Public Use
  Company Number: GB-SUN PHARMACEUTICAL INDUSTRIES LTD-2023RR-416149

PATIENT
  Age: 95 Year
  Sex: Female
  Weight: 48 kg

DRUGS (10)
  1. CITALOPRAM [Suspect]
     Active Substance: CITALOPRAM HYDROBROMIDE
     Indication: Ill-defined disorder
     Dosage: UNK
     Route: 048
     Dates: start: 20231011, end: 20231012
  2. ADCAL [Concomitant]
     Indication: Ill-defined disorder
     Dosage: UNK, QID
     Route: 065
     Dates: start: 20221111
  3. AMLODIPINE [Concomitant]
     Active Substance: AMLODIPINE BESYLATE
     Indication: Ill-defined disorder
     Dosage: UNK, QD
     Route: 065
     Dates: start: 20221111
  4. CITALOPRAM [Concomitant]
     Active Substance: CITALOPRAM HYDROBROMIDE
     Indication: Ill-defined disorder
     Dosage: UNK, QD
     Route: 065
     Dates: start: 20230927
  5. KETOPROFEN [Concomitant]
     Active Substance: KETOPROFEN
     Indication: Ill-defined disorder
     Dosage: APPLY UP TO THREE TIMES A DAY
     Route: 065
     Dates: start: 20221111
  6. NITROFURANTOIN [Concomitant]
     Active Substance: NITROFURANTOIN
     Indication: Ill-defined disorder
     Dosage: UNK, BID
     Route: 065
     Dates: start: 20231002, end: 20231007
  7. PROCHLORPERAZINE [Concomitant]
     Active Substance: PROCHLORPERAZINE
     Indication: Ill-defined disorder
     Dosage: ONE TABLET UP TO THREE TIMES A DAY IF NEEDED
     Route: 065
     Dates: start: 20231002, end: 20231012
  8. SOLIFENACIN [Concomitant]
     Active Substance: SOLIFENACIN
     Indication: Ill-defined disorder
     Dosage: UNK, QD
     Route: 065
     Dates: start: 20230608
  9. TRIMETHOPRIM [Concomitant]
     Active Substance: TRIMETHOPRIM
     Indication: Ill-defined disorder
     Dosage: UNK, BID
     Route: 065
     Dates: start: 20230927, end: 20231002
  10. VALSARTAN [Concomitant]
     Active Substance: VALSARTAN
     Indication: Ill-defined disorder
     Dosage: UNK, QD
     Route: 065
     Dates: start: 20221111

REACTIONS (2)
  - Dizziness [Recovered/Resolved]
  - Fall [Recovered/Resolved]

NARRATIVE: CASE EVENT DATE: 20231011
